FAERS Safety Report 9792134 (Version 1)
Quarter: 2013Q4

REPORT INFORMATION
  Report Type: Spontaneous
  Country: US (occurrence: None)
  Receive Date: 20131231
  Receipt Date: 20131231
  Transmission Date: 20140711
  Serious: Yes (Death, Life-Threatening, Disabling)
  Sender: FDA-Public Use
  Company Number: None

PATIENT
  Age: 86 Year
  Sex: Female
  Weight: 88.45 kg

DRUGS (8)
  1. ZOLOFT [Suspect]
     Indication: DEPRESSION
     Dates: start: 1995, end: 2008
  2. RISPERDAL [Suspect]
     Indication: DEPRESSION
     Dates: start: 1994, end: 2008
  3. RISPEROLOL [Concomitant]
  4. ZOLOFT [Concomitant]
  5. PROZAC [Concomitant]
  6. CEKEXA [Concomitant]
  7. EFFEXOR [Concomitant]
  8. TRILOFAN [Concomitant]

REACTIONS (15)
  - Confusional state [None]
  - Disturbance in attention [None]
  - Insomnia [None]
  - Headache [None]
  - Breast swelling [None]
  - Feeling abnormal [None]
  - Paraesthesia [None]
  - Pain [None]
  - Musculoskeletal stiffness [None]
  - Cough [None]
  - Ear disorder [None]
  - Nasal disorder [None]
  - Pharyngeal disorder [None]
  - Rhinorrhoea [None]
  - Hypersensitivity [None]
